FAERS Safety Report 18281574 (Version 1)
Quarter: 2020Q3

REPORT INFORMATION
  Report Type: Spontaneous
  Country: ES (occurrence: ES)
  Receive Date: 20200918
  Receipt Date: 20200918
  Transmission Date: 20201103
  Serious: Yes (Other)
  Sender: FDA-Public Use
  Company Number: NVSC2020ES254236

PATIENT
  Age: 63 Year
  Sex: Male

DRUGS (3)
  1. DABRAFENIB [Suspect]
     Active Substance: DABRAFENIB
     Indication: LUNG ADENOCARCINOMA
     Dosage: 150 MG, BID (OFF PROTOCOL)
     Route: 065
  2. DABRAFENIB [Suspect]
     Active Substance: DABRAFENIB
     Dosage: UNK (THERAPY MAINTAINED)
     Route: 065
  3. TRAMETINIB [Suspect]
     Active Substance: TRAMETINIB
     Indication: LUNG ADENOCARCINOMA
     Dosage: 2 MG, QD
     Route: 065

REACTIONS (4)
  - Malignant neoplasm progression [Unknown]
  - Therapy partial responder [Unknown]
  - Pneumonitis chemical [Recovering/Resolving]
  - Lung adenocarcinoma [Unknown]
